FAERS Safety Report 24779222 (Version 1)
Quarter: 2024Q4

REPORT INFORMATION
  Report Type: Report from Study
  Country: US (occurrence: US)
  Receive Date: 20241226
  Receipt Date: 20241226
  Transmission Date: 20250115
  Serious: Yes (Other)
  Sender: MERCK
  Company Number: US-009507513-2408USA008382

PATIENT
  Sex: Female
  Weight: 50.34 kg

DRUGS (7)
  1. SOTATERCEPT [Suspect]
     Active Substance: SOTATERCEPT
     Indication: Pulmonary arterial hypertension
     Dosage: 0.7 ML EVERY 3 WEEKS; STRENGTH: 45 MG
     Route: 058
     Dates: start: 202408
  2. WINREVAIR [Suspect]
     Active Substance: SOTATERCEPT-CSRK
     Indication: Pulmonary arterial hypertension
     Dosage: 0.7 MILLILITER, Q3W
     Route: 058
     Dates: start: 202408
  3. WINREVAIR [Suspect]
     Active Substance: SOTATERCEPT-CSRK
     Dosage: 0.7 MILLILITER, Q3W
     Route: 058
     Dates: start: 202409
  4. WINREVAIR [Suspect]
     Active Substance: SOTATERCEPT-CSRK
     Indication: Pulmonary arterial hypertension
     Dosage: 0.7 MILLILITER, Q3W
     Route: 058
     Dates: start: 202408
  5. WINREVAIR [Suspect]
     Active Substance: SOTATERCEPT-CSRK
     Dosage: 0.7 MILLILITER, Q3W
     Route: 058
     Dates: start: 202409
  6. UPTRAVI [Concomitant]
     Active Substance: SELEXIPAG
  7. REMODULIN [Concomitant]
     Active Substance: TREPROSTINIL
     Dosage: MDV
     Route: 042

REACTIONS (23)
  - Central venous catheterisation [Unknown]
  - Erythema [Unknown]
  - Hypotension [Unknown]
  - Depressed mood [Unknown]
  - Catheter site erythema [Unknown]
  - Catheter site swelling [Unknown]
  - Catheter site pain [Unknown]
  - Oedema peripheral [Unknown]
  - Oedema [Unknown]
  - Ageusia [Unknown]
  - Body temperature abnormal [Unknown]
  - Catheter site erythema [Unknown]
  - Catheter site pain [Unknown]
  - Catheter site discharge [Unknown]
  - Catheter site scab [Unknown]
  - Peripheral swelling [Unknown]
  - Dyspnoea exertional [Unknown]
  - Decreased appetite [Unknown]
  - Lethargy [Unknown]
  - Pain in extremity [Unknown]
  - Flushing [Unknown]
  - Nasal congestion [Unknown]
  - Epistaxis [Unknown]

NARRATIVE: CASE EVENT DATE: 20240101
